FAERS Safety Report 4865309-6 (Version None)
Quarter: 2005Q4

REPORT INFORMATION
  Report Type: 
  Country: None (occurrence: None)
  Receive Date: 20051223
  Receipt Date: 20051221
  Transmission Date: 20060501
  Serious: Yes (Death, Other)
  Sender: FDA-Public Use
  Company Number: 2005PK02522

PATIENT
  Sex: Female

DRUGS (2)
  1. ARIMIDEX [Suspect]
     Indication: BREAST CANCER
     Dates: start: 20050901
  2. BIPHOSPHONATE [Concomitant]
     Indication: METASTASES TO BONE

REACTIONS (2)
  - HEPATIC FAILURE [None]
  - HEPATITIS TOXIC [None]
